FAERS Safety Report 8420343 (Version 7)
Quarter: 2013Q1

REPORT INFORMATION
  Report Type: Spontaneous
  Country: US (occurrence: US)
  Receive Date: 20120222
  Receipt Date: 20130314
  Transmission Date: 20140127
  Serious: Yes (Disabling, Other)
  Sender: FDA-Public Use
  Company Number: US-PFIZER INC-2012041832

PATIENT
  Age: 56 Year
  Sex: Female
  Weight: 68 kg

DRUGS (6)
  1. CELEBREX [Suspect]
     Indication: EHLERS-DANLOS SYNDROME
     Dosage: 200 MG, DAILY
     Dates: start: 19820913
  2. CRESTOR [Suspect]
     Indication: BLOOD CHOLESTEROL INCREASED
     Dosage: UNK
  3. ZETIA [Suspect]
     Indication: BLOOD CHOLESTEROL INCREASED
     Dosage: UNK
  4. VITAMIN D [Concomitant]
     Indication: OSTEOPENIA
     Dosage: 50000 IU, DAILY
  5. NEXIUM [Concomitant]
     Indication: GASTROOESOPHAGEAL REFLUX DISEASE
     Dosage: UNK
  6. FIORICET [Concomitant]
     Indication: MIGRAINE
     Dosage: UNK

REACTIONS (14)
  - Migraine [Not Recovered/Not Resolved]
  - Intervertebral disc protrusion [Not Recovered/Not Resolved]
  - Depression [Not Recovered/Not Resolved]
  - Gait disturbance [Unknown]
  - Anxiety [Not Recovered/Not Resolved]
  - Meniscus injury [Unknown]
  - Limb operation [Unknown]
  - Pain [Unknown]
  - Myalgia [Unknown]
  - Abdominal discomfort [Unknown]
  - Blood cholesterol increased [Unknown]
  - Local swelling [Unknown]
  - Joint injury [Unknown]
  - Dysstasia [Unknown]
